FAERS Safety Report 22375002 (Version 1)
Quarter: 2023Q2

REPORT INFORMATION
  Report Type: Spontaneous
  Country: IT (occurrence: IT)
  Receive Date: 20230527
  Receipt Date: 20230527
  Transmission Date: 20230722
  Serious: Yes (Hospitalization, Other)
  Sender: FDA-Public Use
  Company Number: IT-DSJP-DSE-2023-118620

PATIENT
  Age: 53 Year
  Sex: Male

DRUGS (2)
  1. OLMESARTAN [Suspect]
     Active Substance: OLMESARTAN
     Indication: Hypertension
     Dosage: 20 MILLIGRAM
     Route: 065
  2. TUROCTOCOG ALFA [Concomitant]
     Active Substance: TUROCTOCOG ALFA
     Indication: Factor VIII deficiency
     Dosage: 4000 INTERNATIONAL UNIT,(4000 IU EVERY 5 DAYS)
     Route: 065

REACTIONS (2)
  - Carotid artery dissection [Recovered/Resolved]
  - Renal failure [Unknown]
